FAERS Safety Report 23696829 (Version 2)
Quarter: 2024Q2

REPORT INFORMATION
  Report Type: Report from Study
  Country: US (occurrence: US)
  Receive Date: 20240402
  Receipt Date: 20240405
  Transmission Date: 20240717
  Serious: Yes (Other)
  Sender: FDA-Public Use
  Company Number: US-PFIZER INC-202400074791

PATIENT
  Age: 62 Year
  Sex: Female

DRUGS (1)
  1. IBRANCE [Suspect]
     Active Substance: PALBOCICLIB
     Dosage: 100 MG, CYCLIC, DAILY X 21 DAYS ON, 7 DAYS OFF
     Route: 048
     Dates: start: 20240205

REACTIONS (6)
  - Chest tube insertion [Unknown]
  - White blood cell count decreased [Unknown]
  - Fatigue [Unknown]
  - Headache [Unknown]
  - Alopecia [Unknown]
  - Tenderness [Unknown]
